FAERS Safety Report 5146585-1 (Version None)
Quarter: 2006Q4

REPORT INFORMATION
  Report Type: 
  Country: None (occurrence: None)
  Receive Date: 20061109
  Receipt Date: 20061027
  Transmission Date: 20070319
  Serious: Yes (Hospitalization)
  Sender: FDA-Public Use
  Company Number: SEWYE360630OCT06

PATIENT
  Sex: Female

DRUGS (14)
  1. ENBREL [Suspect]
     Indication: ASTHMA
     Route: 058
     Dates: end: 20060706
  2. LANSOPRAZOLE [Concomitant]
  3. CETIRIZINE HCL [Concomitant]
  4. FOLACIN [Concomitant]
  5. THEO-DUR [Concomitant]
  6. SINGULAIR [Concomitant]
  7. FURIX [Concomitant]
  8. PULMICORT [Concomitant]
  9. PREDNISOLON [Concomitant]
  10. VENTOLIN [Concomitant]
  11. ACETYLCYSTEINE [Concomitant]
  12. CALCICHEW-D3 [Concomitant]
  13. OXIS [Concomitant]
  14. KALIUM RETARD [Concomitant]

REACTIONS (1)
  - PULMONARY EMBOLISM [None]
